FAERS Safety Report 18953668 (Version 1)
Quarter: 2021Q1

REPORT INFORMATION
  Report Type: Spontaneous
  Country: US (occurrence: US)
  Receive Date: 20210301
  Receipt Date: 20210301
  Transmission Date: 20210420
  Serious: Yes (Other)
  Sender: FDA-Public Use
  Company Number: None

PATIENT
  Age: 79 Year
  Sex: Female
  Weight: 56.6 kg

DRUGS (2)
  1. TRIMETHOPRIM?SULFAMETHOXAZOLE [Suspect]
     Active Substance: SULFAMETHOXAZOLE\TRIMETHOPRIM
     Indication: BURKHOLDERIA INFECTION
     Route: 048
     Dates: start: 20210207, end: 20210211
  2. TRIMETHOPRIM?SULFAMETHOXAZOLE ORAL SUSPENSION 40?200MG/5ML [Concomitant]
     Dates: start: 20210209, end: 20210211

REACTIONS (1)
  - Hyperkalaemia [None]

NARRATIVE: CASE EVENT DATE: 20210211
